FAERS Safety Report 15370679 (Version 1)
Quarter: 2018Q4

REPORT INFORMATION
  Report Type: Spontaneous
  Country: ZA (occurrence: ZA)
  Receive Date: 20180911
  Receipt Date: 20180911
  Transmission Date: 20190204
  Serious: Yes (Other)
  Sender: FDA-Public Use
  Company Number: ZA-PFIZER INC-2018363066

PATIENT
  Age: 78 Year
  Sex: Male

DRUGS (8)
  1. ASPAVOR [Suspect]
     Active Substance: ATORVASTATIN
     Dosage: 20 MG, UNK
  2. ZOLOFT [Suspect]
     Active Substance: SERTRALINE HYDROCHLORIDE
     Dosage: 50 MG, UNK
  3. NEXIPRAZ [Suspect]
     Active Substance: ESOMEPRAZOLE
     Dosage: 40 MG, UNK
  4. PLENISH-K [Suspect]
     Active Substance: POTASSIUM CHLORIDE
     Dosage: 600 MG, UNK
  5. CO-TAREG [Suspect]
     Active Substance: HYDROCHLOROTHIAZIDE\VALSARTAN
     Dosage: 80/12.5 MG
  6. MOBIC [Suspect]
     Active Substance: MELOXICAM
     Dosage: 15 MG, UNK
  7. PURICOS [Suspect]
     Active Substance: ALLOPURINOL
     Dosage: 100 MG, UNK
  8. CALCIFEROL [ERGOCALCIFEROL] [Suspect]
     Active Substance: ERGOCALCIFEROL
     Dosage: 50000 IU, UNK

REACTIONS (2)
  - Malaise [Unknown]
  - Cerebrovascular accident [Unknown]
